FAERS Safety Report 7088196-7 (Version None)
Quarter: 2010Q4

REPORT INFORMATION
  Report Type: 
  Country: None (occurrence: None)
  Receive Date: 20101108
  Receipt Date: 20101014
  Transmission Date: 20110411
  Serious: Yes (Hospitalization)
  Sender: FDA-Public Use
  Company Number: US-BAYER-201013939NA

PATIENT
  Age: 30 Year
  Sex: Female
  Weight: 143 kg

DRUGS (6)
  1. YAZ [Suspect]
     Indication: PREMENSTRUAL SYNDROME
     Route: 048
  2. YASMIN [Suspect]
     Indication: PREMENSTRUAL SYNDROME
     Route: 048
     Dates: start: 20080401, end: 20080601
  3. ZOLOFT [Concomitant]
     Indication: DEPRESSION
     Dates: start: 20020101, end: 20100101
  4. AMITRIPTYLINE HCL [Concomitant]
     Indication: VERTIGO
     Dates: start: 20020101, end: 20100101
  5. TYLENOL [Concomitant]
     Indication: HEADACHE
     Dosage: OCCASIONAL USE
  6. MULTI-VITAMIN [Concomitant]
     Indication: UNEVALUABLE INVESTIGATION

REACTIONS (1)
  - PULMONARY EMBOLISM [None]
